FAERS Safety Report 8143856-1 (Version None)
Quarter: 2012Q1

REPORT INFORMATION
  Report Type: 
  Country: None (occurrence: None)
  Receive Date: 20120217
  Receipt Date: 20120207
  Transmission Date: 20120608
  Serious: Yes (Death, Hospitalization)
  Sender: FDA-Public Use
  Company Number: US-JNJFOC-20120204990

PATIENT
  Sex: Female
  Weight: 51.26 kg

DRUGS (8)
  1. REMICADE [Suspect]
     Indication: RHEUMATOID ARTHRITIS
     Dosage: 4 VIALS
     Route: 042
  2. REMICADE [Suspect]
     Route: 042
     Dates: start: 20100101
  3. REMICADE [Suspect]
     Route: 042
     Dates: start: 20100101
  4. REMICADE [Suspect]
     Dosage: 4 VIALS
     Route: 042
  5. REMICADE [Suspect]
     Indication: OSTEOARTHRITIS
     Dosage: 4 VIALS
     Route: 042
  6. REMICADE [Suspect]
     Dosage: 4 VIALS
     Route: 042
  7. REMICADE [Suspect]
     Route: 042
  8. REMICADE [Suspect]
     Route: 042

REACTIONS (11)
  - DECUBITUS ULCER [None]
  - PYREXIA [None]
  - STAPHYLOCOCCAL INFECTION [None]
  - FALL [None]
  - DIARRHOEA [None]
  - DEATH [None]
  - RENAL FAILURE [None]
  - DRUG EFFECT DECREASED [None]
  - MULTI-ORGAN FAILURE [None]
  - HIP FRACTURE [None]
  - OPEN WOUND [None]
